FAERS Safety Report 5405007-3 (Version None)
Quarter: 2007Q3

REPORT INFORMATION
  Report Type: 
  Country: None (occurrence: None)
  Receive Date: 20070801
  Receipt Date: 20070725
  Transmission Date: 20080115
  Serious: Yes (Hospitalization)
  Sender: FDA-Public Use
  Company Number: 2007RL000336

PATIENT
  Age: 88 Year

DRUGS (2)
  1. INNOPRAN XL [Suspect]
     Indication: DRUG USE FOR UNKNOWN INDICATION
  2. ALBUTEROL [Concomitant]

REACTIONS (4)
  - CEREBROVASCULAR ACCIDENT [None]
  - DRUG ADMINISTRATION ERROR [None]
  - DYSPHAGIA [None]
  - HYPOTENSION [None]
